FAERS Safety Report 15292214 (Version 1)
Quarter: 2018Q3

REPORT INFORMATION
  Report Type: Spontaneous
  Country: US (occurrence: US)
  Receive Date: 20180806
  Receipt Date: 20180806
  Transmission Date: 20181010
  Serious: Yes (Disabling)
  Sender: FDA-Public Use
  Company Number: None

PATIENT
  Age: 41 Year
  Sex: Male
  Weight: 108 kg

DRUGS (2)
  1. INFLAVANOIDS [Concomitant]
  2. VANCOMYCIN [Suspect]
     Active Substance: VANCOMYCIN
     Indication: PROPHYLAXIS
     Dates: start: 20160805, end: 20160805

REACTIONS (1)
  - Tinnitus [None]

NARRATIVE: CASE EVENT DATE: 20160805
